FAERS Safety Report 5929478-9 (Version None)
Quarter: 2008Q4

REPORT INFORMATION
  Report Type: 
  Country: None (occurrence: None)
  Receive Date: 20081024
  Receipt Date: 20081015
  Transmission Date: 20090506
  Serious: Yes (Hospitalization)
  Sender: FDA-Public Use
  Company Number: JP-JNJFOC-20080901133

PATIENT
  Age: 21 Year
  Sex: Female
  Weight: 60 kg

DRUGS (18)
  1. REMICADE [Suspect]
     Route: 042
  2. REMICADE [Suspect]
     Route: 042
  3. REMICADE [Suspect]
     Indication: CROHN'S DISEASE
     Route: 042
  4. PENTASA [Concomitant]
     Indication: CROHN'S DISEASE
     Route: 048
  5. LEUKERIN [Concomitant]
     Route: 048
  6. LEUKERIN [Concomitant]
     Indication: CROHN'S DISEASE
     Route: 048
  7. STERIODS [Concomitant]
  8. STERIODS [Concomitant]
  9. STERIODS [Concomitant]
     Indication: PROPHYLAXIS
  10. FAMOTIDINE [Concomitant]
     Route: 048
  11. LAC-B [Concomitant]
     Route: 048
  12. LEUKERIN [Concomitant]
     Route: 048
  13. LEUKERIN [Concomitant]
     Route: 048
  14. SOLU-CORTEF [Concomitant]
     Indication: PROPHYLAXIS
  15. ELENTAL [Concomitant]
     Route: 048
  16. ELENTAL [Concomitant]
     Route: 048
  17. MAGLAX [Concomitant]
     Route: 048
  18. SELBEX [Concomitant]
     Route: 048

REACTIONS (10)
  - ANORECTAL DISCOMFORT [None]
  - ANTINUCLEAR ANTIBODY INCREASED [None]
  - ARTHRALGIA [None]
  - DIARRHOEA [None]
  - INFLAMMATION [None]
  - INFUSION RELATED REACTION [None]
  - INTESTINAL ULCER [None]
  - PYREXIA [None]
  - RASH ERYTHEMATOUS [None]
  - RASH PRURITIC [None]
